FAERS Safety Report 9423489 (Version 7)
Quarter: 2015Q1

REPORT INFORMATION
  Report Type: Report from Study
  Country: DE (occurrence: DE)
  Receive Date: 20130726
  Receipt Date: 20150319
  Transmission Date: 20150721
  Serious: Yes (Death, Hospitalization)
  Sender: FDA-Public Use
  Company Number: DE-ROCHE-1240333

PATIENT
  Age: 79 Year
  Sex: Male
  Weight: 62 kg

DRUGS (2)
  1. VEMURAFENIB [Suspect]
     Active Substance: VEMURAFENIB
     Indication: METASTATIC MALIGNANT MELANOMA
     Dosage: LAST DOSE PRIOR TO SAE: 19/JUN/2013, 21/JUL/2013, 25/AUG/2013, 26/AUG/2013
     Route: 048
     Dates: start: 20130507
  2. VEMURAFENIB [Suspect]
     Active Substance: VEMURAFENIB
     Dosage: DATE OF MOST RECENT DOSE PRIOR TO SAE: 01/SEP/2013
     Route: 048
     Dates: start: 20130407

REACTIONS (5)
  - Blood creatinine increased [Recovered/Resolved]
  - General physical health deterioration [Recovered/Resolved with Sequelae]
  - Pneumonia [Fatal]
  - Neoplasm skin [Recovered/Resolved with Sequelae]
  - Blood alkaline phosphatase increased [Unknown]

NARRATIVE: CASE EVENT DATE: 20130620
